FAERS Safety Report 9711303 (Version 2)
Quarter: 2013Q4

REPORT INFORMATION
  Report Type: Spontaneous
  Country: US (occurrence: US)
  Receive Date: 20131126
  Receipt Date: 20131126
  Transmission Date: 20140711
  Serious: No
  Sender: FDA-Public Use
  Company Number: US-BRISTOL-MYERS SQUIBB COMPANY-19061324

PATIENT
  Age: 56 Year
  Sex: Female
  Weight: 101.13 kg

DRUGS (4)
  1. BYDUREON [Suspect]
     Indication: TYPE 2 DIABETES MELLITUS
     Dates: start: 20130628
  2. LEVEMIR [Concomitant]
  3. HUMALOG [Concomitant]
  4. INSULIN [Concomitant]

REACTIONS (3)
  - Drug ineffective [Unknown]
  - Dysarthria [Unknown]
  - Malaise [Unknown]
